FAERS Safety Report 13508801 (Version 1)
Quarter: 2017Q2

REPORT INFORMATION
  Report Type: Spontaneous
  Country: US (occurrence: US)
  Receive Date: 20170503
  Receipt Date: 20170503
  Transmission Date: 20170830
  Serious: No
  Sender: FDA-Public Use
  Company Number: US-GLAXOSMITHKLINE-US2017063965

PATIENT
  Age: 56 Year
  Sex: Female

DRUGS (22)
  1. BENLYSTA [Suspect]
     Active Substance: BELIMUMAB
     Indication: SYSTEMIC LUPUS ERYTHEMATOSUS
     Dosage: UNK
     Route: 042
     Dates: start: 2016
  2. TAMIFLU [Concomitant]
     Active Substance: OSELTAMIVIR PHOSPHATE
  3. LISINOPRIL. [Concomitant]
     Active Substance: LISINOPRIL
  4. NADOLOL. [Concomitant]
     Active Substance: NADOLOL
  5. TIZANIDINE. [Concomitant]
     Active Substance: TIZANIDINE
  6. AMLODIPINE [Concomitant]
     Active Substance: AMLODIPINE BESYLATE
  7. HYDROXYCHLOROQUINE [Concomitant]
     Active Substance: HYDROXYCHLOROQUINE
  8. LEVOTHYROXINE. [Concomitant]
     Active Substance: LEVOTHYROXINE
  9. MUCINEX-DM [Concomitant]
  10. VITAMIN B12 INJECTION [Concomitant]
  11. FENOFIBRATE. [Concomitant]
     Active Substance: FENOFIBRATE
  12. HYDROCODONE [Concomitant]
     Active Substance: HYDROCODONE
  13. TRAZODONE [Concomitant]
     Active Substance: TRAZODONE HYDROCHLORIDE
  14. ZETIA [Concomitant]
     Active Substance: EZETIMIBE
  15. CRESTOR [Concomitant]
     Active Substance: ROSUVASTATIN CALCIUM
     Dosage: UNK
  16. PREDNISONE. [Concomitant]
     Active Substance: PREDNISONE
  17. AMOX-CLAV [Concomitant]
     Active Substance: AMOXICILLIN\CLAVULANATE POTASSIUM
  18. AZATHIOPRINE. [Concomitant]
     Active Substance: AZATHIOPRINE
  19. BENZONATATE. [Concomitant]
     Active Substance: BENZONATATE
  20. FUROSEMIDE. [Concomitant]
     Active Substance: FUROSEMIDE
  21. MAGNESIUM [Concomitant]
     Active Substance: MAGNESIUM
  22. METFORMIN [Concomitant]
     Active Substance: METFORMIN HYDROCHLORIDE

REACTIONS (2)
  - Influenza [Recovering/Resolving]
  - Drug dose omission [Unknown]

NARRATIVE: CASE EVENT DATE: 201704
